FAERS Safety Report 8957586 (Version 2)
Quarter: 2013Q2

REPORT INFORMATION
  Report Type: Spontaneous
  Country: GB (occurrence: GB)
  Receive Date: 20121210
  Receipt Date: 20130626
  Transmission Date: 20140414
  Serious: Yes (Hospitalization)
  Sender: FDA-Public Use
  Company Number: GB-TEVA-373479ISR

PATIENT
  Age: 66 Year
  Sex: Male

DRUGS (8)
  1. RAMIPRIL [Suspect]
     Indication: ISCHAEMIC HEART DISEASE PROPHYLAXIS
     Route: 048
  2. PLACEBO [Concomitant]
     Indication: CORONARY ARTERY DISEASE
     Route: 048
     Dates: start: 20111230, end: 20121029
  3. PLACEBO [Concomitant]
     Route: 048
     Dates: start: 20121217
  4. ATORVASTATIN [Concomitant]
     Indication: BLOOD CHOLESTEROL INCREASED
     Route: 048
  5. OMEPRAZOLE [Concomitant]
     Indication: PROPHYLAXIS
     Route: 048
  6. CITALOPRAM [Concomitant]
     Indication: DEPRESSION
     Route: 048
  7. BISOPROLOL [Concomitant]
     Indication: PROPHYLAXIS
     Route: 048
  8. ASA [Concomitant]
     Route: 048

REACTIONS (1)
  - Pneumonia [Recovered/Resolved]
